FAERS Safety Report 4411882-1 (Version None)
Quarter: 2004Q3

REPORT INFORMATION
  Report Type: 
  Country: None (occurrence: None)
  Receive Date: 20040730
  Receipt Date: 20030725
  Transmission Date: 20050211
  Serious: No
  Sender: FDA-Public Use
  Company Number: US-GLAXOSMITHKLINE-A0418345A

PATIENT
  Age: 88 Year
  Sex: Male

DRUGS (8)
  1. ZANTAC [Suspect]
     Dosage: 150MG TWICE PER DAY
     Route: 048
  2. STOOL SOFTENER [Concomitant]
  3. SENOKOT [Concomitant]
  4. TOPROL-XL [Concomitant]
  5. LASIX [Concomitant]
  6. PROSCAR [Concomitant]
  7. NEPHRO-VITE [Concomitant]
  8. FOSAMAX [Concomitant]

REACTIONS (1)
  - CONSTIPATION [None]
